FAERS Safety Report 18480075 (Version 1)
Quarter: 2020Q4

REPORT INFORMATION
  Report Type: Spontaneous
  Country: DE (occurrence: DE)
  Receive Date: 20201109
  Receipt Date: 20201109
  Transmission Date: 20210114
  Serious: Yes (Death, Other)
  Sender: FDA-Public Use
  Company Number: DE-MICRO LABS LIMITED-ML2020-03307

PATIENT
  Age: 28 Year
  Sex: Male

DRUGS (10)
  1. CAFFEINE CITRATE. [Suspect]
     Active Substance: CAFFEINE CITRATE
  2. PMMA (PARAMETHOXYMETHAMPHETAMINE) [Suspect]
     Active Substance: 4-METHOXYMETHAMPHETAMINE
  3. CHLORPROTHIXENE [Suspect]
     Active Substance: CHLORPROTHIXENE
  4. METHAMPHETAMINE [Suspect]
     Active Substance: METHAMPHETAMINE
  5. ALCOHOL. [Suspect]
     Active Substance: ALCOHOL
  6. AMPHETAMINE [Suspect]
     Active Substance: AMPHETAMINE
  7. DIPHENHYDRAMINE HYDROCHLORIDE. [Suspect]
     Active Substance: DIPHENHYDRAMINE HYDROCHLORIDE
  8. AMISULPRIDE [Suspect]
     Active Substance: AMISULPRIDE
  9. CLOZAPINE. [Suspect]
     Active Substance: CLOZAPINE
  10. DOXYLAMINE [Suspect]
     Active Substance: DOXYLAMINE

REACTIONS (2)
  - Drug abuse [Unknown]
  - Toxicity to various agents [Fatal]
